FAERS Safety Report 17604335 (Version 2)
Quarter: 2020Q2

REPORT INFORMATION
  Report Type: Spontaneous
  Country: US (occurrence: US)
  Receive Date: 20200331
  Receipt Date: 20200428
  Transmission Date: 20200713
  Serious: No
  Sender: FDA-Public Use
  Company Number: US-PFIZER INC-2020128312

PATIENT
  Age: 30 Year
  Sex: Female

DRUGS (2)
  1. SOMAVERT [Suspect]
     Active Substance: PEGVISOMANT
     Dosage: 20 MG, DAILY
     Route: 058
  2. SOMAVERT [Suspect]
     Active Substance: PEGVISOMANT
     Indication: ACROMEGALY
     Dosage: 10 MG, DAILY
     Route: 058
     Dates: start: 20200304, end: 20200417

REACTIONS (8)
  - Therapeutic response unexpected [Unknown]
  - Gastrointestinal sounds abnormal [Recovering/Resolving]
  - Nausea [Unknown]
  - Product dose omission [Unknown]
  - Fatigue [Unknown]
  - Headache [Unknown]
  - Abdominal discomfort [Recovering/Resolving]
  - Flatulence [Recovering/Resolving]
